APPROVED DRUG PRODUCT: ADENOSINE
Active Ingredient: ADENOSINE
Strength: 3MG/ML
Dosage Form/Route: INJECTABLE;INJECTION
Application: A077283 | Product #001 | TE Code: AP
Applicant: GLAND PHARMA LTD
Approved: Jun 14, 2007 | RLD: No | RS: No | Type: RX